FAERS Safety Report 6010050-X (Version None)
Quarter: 2008Q4

REPORT INFORMATION
  Report Type: 
  Country: None (occurrence: None)
  Receive Date: 20081218
  Receipt Date: 20081215
  Transmission Date: 20090506
  Serious: Yes (Other)
  Sender: FDA-Public Use
  Company Number: IE-ASTRAZENECA-2008GB02343

PATIENT
  Age: 48 Year
  Sex: Female

DRUGS (3)
  1. CRESTOR [Suspect]
     Indication: HYPERCHOLESTEROLAEMIA
     Route: 048
     Dates: start: 20081124, end: 20081124
  2. ERYTHROMYCIN [Concomitant]
  3. ACTIFED [Concomitant]

REACTIONS (5)
  - DISCOMFORT [None]
  - MALAISE [None]
  - OEDEMA MOUTH [None]
  - PALPITATIONS [None]
  - TONGUE OEDEMA [None]
